FAERS Safety Report 5952106-3 (Version None)
Quarter: 2008Q4

REPORT INFORMATION
  Report Type: 
  Country: None (occurrence: None)
  Receive Date: 20081113
  Receipt Date: 20080414
  Transmission Date: 20090506
  Serious: No
  Sender: FDA-Public Use
  Company Number: A0723503A

PATIENT
  Age: 86 Year
  Sex: Male

DRUGS (2)
  1. COREG [Suspect]
     Indication: DRUG USE FOR UNKNOWN INDICATION
     Dates: start: 20080324
  2. OXYBUTYNIN CHLORIDE [Suspect]
     Indication: URINARY INCONTINENCE
     Route: 062
     Dates: start: 20060101

REACTIONS (2)
  - APPLICATION SITE PRURITUS [None]
  - DRUG INEFFECTIVE [None]
